FAERS Safety Report 16165657 (Version 4)
Quarter: 2019Q2

REPORT INFORMATION
  Report Type: Spontaneous
  Country: NL (occurrence: NL)
  Receive Date: 20190405
  Receipt Date: 20190426
  Transmission Date: 20190711
  Serious: Yes (Death, Other)
  Sender: FDA-Public Use
  Company Number: PHHY2019NL077428

PATIENT
  Age: 46 Year
  Sex: Male

DRUGS (1)
  1. PREDNISOLONE. [Suspect]
     Active Substance: PREDNISOLONE
     Indication: CHOLANGITIS SCLEROSING
     Dosage: UNK (RECEIVED FOR MORE THAN 2 YEARS)
     Route: 065

REACTIONS (2)
  - Anaplastic large cell lymphoma T- and null-cell types stage II [Fatal]
  - Product use in unapproved indication [Unknown]
